FAERS Safety Report 22232204 (Version 1)
Quarter: 2023Q2

REPORT INFORMATION
  Report Type: Spontaneous
  Country: US (occurrence: None)
  Receive Date: 20230420
  Receipt Date: 20230420
  Transmission Date: 20230721
  Serious: No
  Sender: FDA-Public Use
  Company Number: US-ROCHE-3267475

PATIENT
  Sex: Female

DRUGS (19)
  1. ESBRIET [Suspect]
     Active Substance: PIRFENIDONE
     Indication: Obstructive sleep apnoea syndrome
     Route: 048
  2. ATORVASTATIN [Concomitant]
     Active Substance: ATORVASTATIN
  3. AZELASTINE [Concomitant]
     Active Substance: AZELASTINE
     Dosage: 137MCG
  4. BIOTIN [Concomitant]
     Active Substance: BIOTIN
     Route: 048
  5. BUMEX [Concomitant]
     Active Substance: BUMETANIDE
  6. CALCIUM [Concomitant]
     Active Substance: CALCIUM
  7. CARVEDILOL [Concomitant]
     Active Substance: CARVEDILOL
  8. COENZYME Q10 [Concomitant]
     Active Substance: DIETARY SUPPLEMENT\UBIDECARENONE
  9. DULOXETINE [Concomitant]
     Active Substance: DULOXETINE
  10. ELIQUIS [Concomitant]
     Active Substance: APIXABAN
  11. ESTRADIOL [Concomitant]
     Active Substance: ESTRADIOL
     Route: 048
  12. GABAPENTIN [Concomitant]
     Active Substance: GABAPENTIN
  13. LEVOTHYROXINE [Concomitant]
     Active Substance: LEVOTHYROXINE
     Route: 048
  14. LORATADINE [Concomitant]
     Active Substance: LORATADINE
     Route: 048
  15. LOSARTAN [Concomitant]
     Active Substance: LOSARTAN
     Route: 048
  16. MAGNESIUM [Concomitant]
     Active Substance: MAGNESIUM
  17. PANTOPRAZOLE [Concomitant]
     Active Substance: PANTOPRAZOLE
  18. POTASSIUM CHLORIDE [Concomitant]
     Active Substance: POTASSIUM CHLORIDE
     Dosage: 20MEQ
  19. ROPINIROLE HYDROCHLORIDE [Concomitant]
     Active Substance: ROPINIROLE HYDROCHLORIDE

REACTIONS (3)
  - Off label use [Unknown]
  - Abdominal discomfort [Recovered/Resolved]
  - Gastrointestinal disorder [Recovered/Resolved]
